FAERS Safety Report 18104547 (Version 1)
Quarter: 2020Q3

REPORT INFORMATION
  Report Type: Spontaneous
  Country: US (occurrence: US)
  Receive Date: 20200803
  Receipt Date: 20200803
  Transmission Date: 20201103
  Serious: Yes (Other)
  Sender: FDA-Public Use
  Company Number: None

PATIENT
  Age: 40 Year
  Sex: Female
  Weight: 58.5 kg

DRUGS (2)
  1. MOXE CITRUS HAND SANITIZER [Suspect]
     Active Substance: ALCOHOL
     Indication: COVID-19 PROPHYLAXIS
     Dosage: ?          QUANTITY:12 OUNCE(S);?
     Route: 061
  2. HUANGJISOO HAND CLEAN [Suspect]
     Active Substance: ALCOHOL

REACTIONS (1)
  - Headache [None]

NARRATIVE: CASE EVENT DATE: 20200701
